FAERS Safety Report 14077908 (Version 1)
Quarter: 2017Q4

REPORT INFORMATION
  Report Type: Spontaneous
  Country: US (occurrence: None)
  Receive Date: 20171011
  Receipt Date: 20171011
  Transmission Date: 20180321
  Serious: Yes (Other)
  Sender: FDA-Public Use
  Company Number: None

PATIENT
  Age: 57 Year
  Sex: Male

DRUGS (1)
  1. LAMOTRIGINE GENERIC [Suspect]
     Active Substance: LAMOTRIGINE
     Indication: BIPOLAR I DISORDER
     Dosage: FREQUENCY - ONCE/DAY HS
     Route: 048
     Dates: start: 20080901

REACTIONS (3)
  - Hypomania [None]
  - Insomnia [None]
  - Migraine [None]

NARRATIVE: CASE EVENT DATE: 200809
